FAERS Safety Report 9366112 (Version 1)
Quarter: 2013Q2

REPORT INFORMATION
  Report Type: Spontaneous
  Country: FI (occurrence: FI)
  Receive Date: 20130625
  Receipt Date: 20130625
  Transmission Date: 20140414
  Serious: Yes (Hospitalization, Other)
  Sender: FDA-Public Use
  Company Number: FI-ASTRAZENECA-2013SE47510

PATIENT
  Age: 14595 Day
  Sex: Female

DRUGS (5)
  1. VIMOVO [Suspect]
     Indication: PAIN
     Dosage: 500/20
     Route: 048
     Dates: start: 20130523, end: 20130527
  2. AERIUS [Concomitant]
     Indication: MULTIPLE ALLERGIES
     Route: 048
     Dates: start: 201304
  3. SYMBICORT [Concomitant]
     Indication: ASTHMA
     Dosage: 10/4.5 MCG, FREQUENCY UNKNOWN
     Route: 055
     Dates: start: 2011
  4. NORFLEX [Concomitant]
     Indication: PAIN
     Route: 048
     Dates: start: 20130525, end: 20130525
  5. LIDOCAIN/BICAIN [Concomitant]
     Indication: INDUCTION OF ANAESTHESIA
     Dosage: 10 MG/ML
     Dates: start: 20130522, end: 20130522

REACTIONS (8)
  - Dysphagia [Unknown]
  - Joint swelling [Unknown]
  - Jaw disorder [Unknown]
  - Anaphylactic reaction [Unknown]
  - Swelling face [Unknown]
  - Swollen tongue [Unknown]
  - Urticaria [Unknown]
  - Arthralgia [Unknown]
